FAERS Safety Report 8533650-1 (Version None)
Quarter: 2012Q3

REPORT INFORMATION
  Report Type: 
  Country: None (occurrence: None)
  Receive Date: 20120724
  Receipt Date: 20120709
  Transmission Date: 20120928
  Serious: Yes (Death, Hospitalization)
  Sender: FDA-Public Use
  Company Number: US-MYLANLABS-2011S1022145

PATIENT
  Age: 37 Year
  Sex: Female
  Weight: 119.3 kg

DRUGS (21)
  1. FENTANYL-100 [Suspect]
     Route: 062
     Dates: end: 20091225
  2. LEVOXYL [Concomitant]
  3. NORCO [Concomitant]
     Dosage: 10MG/325MG; 1 - 2 EVERY 4 HOURS AS NEEDED
  4. BIOFREEZE /06755101/ [Concomitant]
  5. NEOMYCIN POLYMIXIN [Concomitant]
     Dosage: HC-EAR
  6. MULTI-VITAMIN [Concomitant]
  7. IBUPROFEN [Concomitant]
  8. LIDOCAINE [Concomitant]
     Route: 062
  9. CYTOMEL [Concomitant]
  10. VITAMIN B-12 [Concomitant]
  11. SILVER SULFADIAZINE [Concomitant]
  12. ZANAFLEX [Concomitant]
  13. PROVIGIL [Concomitant]
  14. AMINO ACIDS [Concomitant]
  15. ZOFRAN [Concomitant]
  16. REGLAN [Concomitant]
     Dosage: 10 - 20 MG QD
  17. PROMETHAZINE [Concomitant]
  18. FLUOXETINE HCL [Concomitant]
  19. VITAMIN D [Concomitant]
  20. OMEPRAZOLE [Concomitant]
  21. XANAX [Concomitant]

REACTIONS (1)
  - TOXICITY TO VARIOUS AGENTS [None]
